FAERS Safety Report 6114483-2 (Version None)
Quarter: 2009Q1

REPORT INFORMATION
  Report Type: 
  Country: None (occurrence: None)
  Receive Date: 20090313
  Receipt Date: 20090305
  Transmission Date: 20090719
  Serious: Yes (Other)
  Sender: FDA-Public Use
  Company Number: US-ASTRAZENECA-2009UW05920

PATIENT
  Age: 85 Year
  Sex: Female

DRUGS (2)
  1. SEROQUEL [Suspect]
     Dosage: 25 MG
     Route: 048
  2. SEROQUEL [Suspect]
     Dosage: 12.5 MG
     Route: 048

REACTIONS (3)
  - ASPIRATION [None]
  - REGURGITATION [None]
  - SEDATION [None]
